FAERS Safety Report 25785875 (Version 1)
Quarter: 2025Q3

REPORT INFORMATION
  Report Type: Spontaneous
  Country: JP (occurrence: JP)
  Receive Date: 20250910
  Receipt Date: 20250910
  Transmission Date: 20251020
  Serious: Yes (Death)
  Sender: AMGEN
  Company Number: JP-AMGEN-JPNSP2025175899

PATIENT
  Age: 5 Decade
  Sex: Female

DRUGS (1)
  1. IMDELLTRA [Suspect]
     Active Substance: TARLATAMAB-DLLE
     Indication: Small cell lung cancer
     Route: 040
     Dates: start: 202508

REACTIONS (3)
  - Small cell lung cancer metastatic [Fatal]
  - Peritonitis [Fatal]
  - Metastases to uterus [Fatal]

NARRATIVE: CASE EVENT DATE: 20250101
